FAERS Safety Report 18049549 (Version 2)
Quarter: 2020Q3

REPORT INFORMATION
  Report Type: Spontaneous
  Country: US (occurrence: US)
  Receive Date: 20200721
  Receipt Date: 20200729
  Transmission Date: 20201103
  Serious: No
  Sender: FDA-Public Use
  Company Number: US-SA-2020SA188157

PATIENT

DRUGS (2)
  1. DUPIXENT [Suspect]
     Active Substance: DUPILUMAB
     Indication: DERMATITIS ATOPIC
     Dosage: 300 MG, QOW
     Route: 058
     Dates: start: 201907, end: 2019
  2. DUPIXENT [Suspect]
     Active Substance: DUPILUMAB
     Indication: CONJUNCTIVITIS ALLERGIC
     Dosage: 300 MG, OTHER
     Route: 058
     Dates: start: 20190820

REACTIONS (2)
  - Off label use [Unknown]
  - Vertigo [Unknown]

NARRATIVE: CASE EVENT DATE: 201907
